FAERS Safety Report 7760541-6 (Version None)
Quarter: 2011Q3

REPORT INFORMATION
  Report Type: 
  Country: None (occurrence: None)
  Receive Date: 20110919
  Receipt Date: 20110913
  Transmission Date: 20111222
  Serious: Yes (Death)
  Sender: FDA-Public Use
  Company Number: US-ELI_LILLY_AND_COMPANY-US201109003867

PATIENT
  Sex: Male

DRUGS (3)
  1. ALOXI [Concomitant]
  2. DECADRON [Concomitant]
  3. ALIMTA [Suspect]
     Indication: LUNG CANCER METASTATIC
     Dosage: 850 MG, UNK
     Dates: start: 20100920

REACTIONS (1)
  - DEATH [None]
